FAERS Safety Report 9282525 (Version 2)
Quarter: 2013Q2

REPORT INFORMATION
  Report Type: Report from Study
  Country: CA (occurrence: CA)
  Receive Date: 20130510
  Receipt Date: 20130517
  Transmission Date: 20140414
  Serious: Yes (Hospitalization)
  Sender: FDA-Public Use
  Company Number: CA-MPIJNJ-2013-03559

PATIENT
  Sex: 0

DRUGS (2)
  1. VELCADE [Suspect]
     Indication: PLASMA CELL LEUKAEMIA
     Dosage: UNK
     Route: 065
  2. VELCADE [Suspect]
     Indication: STEM CELL TRANSPLANT

REACTIONS (2)
  - Hospitalisation [Unknown]
  - Off label use [Unknown]
